FAERS Safety Report 9915602 (Version 1)
Quarter: 2014Q1

REPORT INFORMATION
  Report Type: Report from Study
  Country: US (occurrence: US)
  Receive Date: 20140221
  Receipt Date: 20140221
  Transmission Date: 20141002
  Serious: Yes (Other)
  Sender: FDA-Public Use
  Company Number: US-ROCHE-1332931

PATIENT
  Sex: Female

DRUGS (13)
  1. LUCENTIS [Suspect]
     Indication: DIABETIC RETINAL OEDEMA
     Route: 050
  2. AVASTIN [Suspect]
     Indication: DIABETIC RETINAL OEDEMA
     Route: 065
     Dates: start: 20090117
  3. KENALOG (UNITED STATES) [Concomitant]
     Route: 065
     Dates: start: 20090425
  4. COMBIGAN [Concomitant]
     Dosage: OS
     Route: 047
  5. TRUSOPT [Concomitant]
     Dosage: OS
     Route: 047
  6. PRED FORTE [Concomitant]
     Dosage: 1% ?OD
     Route: 047
  7. ACULAR [Concomitant]
     Dosage: 5%?OD
     Route: 065
  8. METFORMIN [Concomitant]
     Route: 048
  9. GLIPIZIDE [Concomitant]
     Route: 048
  10. BENAZEPRIL HYDROCHLORIDE [Concomitant]
     Route: 048
  11. PRAVASTATIN [Concomitant]
     Route: 048
  12. JANUVIA [Concomitant]
     Route: 065
  13. METOPROLOL TARTRATE [Concomitant]

REACTIONS (5)
  - Ocular hyperaemia [Unknown]
  - Blindness [Unknown]
  - Vitreous haemorrhage [Unknown]
  - Intraocular lens implant [Unknown]
  - Iris neovascularisation [Unknown]
